FAERS Safety Report 11193200 (Version 2)
Quarter: 2015Q3

REPORT INFORMATION
  Report Type: Spontaneous
  Country: US (occurrence: US)
  Receive Date: 20150616
  Receipt Date: 20150807
  Transmission Date: 20151125
  Serious: Yes (Other)
  Sender: FDA-Public Use
  Company Number: US-PERRIGO-15US005781

PATIENT
  Age: 70 Year
  Sex: Female
  Weight: 67.57 kg

DRUGS (1)
  1. HYDROCORTISONE 1% 319 [Suspect]
     Active Substance: HYDROCORTISONE
     Indication: DERMATITIS CONTACT
     Dosage: SMALL AMOUNT, SINGLE
     Route: 061
     Dates: start: 20150603, end: 20150603

REACTIONS (14)
  - Hypersensitivity [Recovering/Resolving]
  - Confusional state [Recovering/Resolving]
  - Pain [Recovering/Resolving]
  - Ear pain [Recovering/Resolving]
  - Cough [Recovering/Resolving]
  - Dysphonia [Recovering/Resolving]
  - Secretion discharge [Recovering/Resolving]
  - Eye pain [Recovering/Resolving]
  - Vision blurred [Recovering/Resolving]
  - Burning sensation [Recovered/Resolved]
  - Amnesia [Recovering/Resolving]
  - Neuralgia [Recovering/Resolving]
  - Mastoid disorder [Recovering/Resolving]
  - Dyspnoea [Recovering/Resolving]

NARRATIVE: CASE EVENT DATE: 20150603
